FAERS Safety Report 21877668 (Version 2)
Quarter: 2023Q1

REPORT INFORMATION
  Report Type: Spontaneous
  Country: US (occurrence: US)
  Receive Date: 20230118
  Receipt Date: 20230315
  Transmission Date: 20230417
  Serious: No
  Sender: FDA-Public Use
  Company Number: US-UROGEN PHARMA LTD.-2023-UGN-000005

PATIENT

DRUGS (3)
  1. JELMYTO [Suspect]
     Active Substance: MITOMYCIN
     Indication: Transitional cell cancer of the renal pelvis and ureter
     Dosage: 4 MILLILITER (INSTILLATION)
     Dates: start: 20221213, end: 20221213
  2. JELMYTO [Suspect]
     Active Substance: MITOMYCIN
     Dosage: 4 MILLILITER (INSTILLATION)
     Dates: start: 20221220, end: 20221220
  3. JELMYTO [Suspect]
     Active Substance: MITOMYCIN
     Dosage: 4 MILLILITER (INSTILLATION)
     Dates: start: 20230103, end: 20230103

REACTIONS (1)
  - Urinary tract infection [Unknown]

NARRATIVE: CASE EVENT DATE: 20230112
